FAERS Safety Report 4290628-4 (Version None)
Quarter: 2004Q1

REPORT INFORMATION
  Report Type: 
  Country: None (occurrence: None)
  Receive Date: 20040203
  Receipt Date: 20040108
  Transmission Date: 20041129
  Serious: Yes (Death)
  Sender: FDA-Public Use
  Company Number: KII-2003-0006772

PATIENT
  Sex: Male

DRUGS (1)
  1. OXYCONTIN [Suspect]
     Indication: CANCER PAIN
     Dosage: 20 MG, SEE TEXT, ORAL
     Route: 048

REACTIONS (3)
  - BLADDER CANCER [None]
  - CONDITION AGGRAVATED [None]
  - CONFUSIONAL STATE [None]
